FAERS Safety Report 6772987-3 (Version None)
Quarter: 2010Q2

REPORT INFORMATION
  Report Type: 
  Country: None (occurrence: None)
  Receive Date: 20100614
  Receipt Date: 20100528
  Transmission Date: 20101027
  Serious: Yes (Other)
  Sender: FDA-Public Use
  Company Number: 2009001377

PATIENT

DRUGS (2)
  1. ERLOTINIB HYDROCHLORIDE [Suspect]
     Indication: MALIGNANT GLIOMA
     Dosage: (200 MG, QD), ORAL
     Route: 048
  2. BEVACIZUMAB (INJECTION) [Suspect]
     Dosage: (10 MG/KG, Q2WKS), INTRAVENOUS
     Route: 042

REACTIONS (1)
  - NASAL SEPTUM PERFORATION [None]
